FAERS Safety Report 6240607-2 (Version None)
Quarter: 2009Q2

REPORT INFORMATION
  Report Type: 
  Country: None (occurrence: None)
  Receive Date: 20090623
  Receipt Date: 20081031
  Transmission Date: 20091009
  Serious: No
  Sender: FDA-Public Use
  Company Number: US-ASTRAZENECA-2008UW24473

PATIENT
  Age: 63 Year
  Sex: Female
  Weight: 59.9 kg

DRUGS (13)
  1. PULMICORT RESPULES [Suspect]
     Dosage: 0.5 MG BID
     Route: 055
     Dates: start: 20081010
  2. PLAVIX [Concomitant]
  3. HYDROXYCHLOROQUINE SULFATE [Concomitant]
  4. FUROSEMIDE [Concomitant]
  5. DILANTIN [Concomitant]
  6. TRAMADOL HCL [Concomitant]
  7. PREDNISONE TAB [Concomitant]
  8. LEVOTHYROXINE SODIUM [Concomitant]
  9. LIPITOR [Concomitant]
  10. SERTRALINE [Concomitant]
  11. METHOTREXATE [Concomitant]
  12. METOPROLOL TARTRATE [Concomitant]
  13. REMICADE [Concomitant]

REACTIONS (2)
  - ASTHENIA [None]
  - TREMOR [None]
